FAERS Safety Report 7407875-2 (Version None)
Quarter: 2011Q2

REPORT INFORMATION
  Report Type: 
  Country: None (occurrence: None)
  Receive Date: 20110412
  Receipt Date: 20110318
  Transmission Date: 20111010
  Serious: No
  Sender: FDA-Public Use
  Company Number: US-B.I. PHARMACEUTICALS,INC./RIDGEFIELD-2011-BP-08754BP

PATIENT
  Sex: Female

DRUGS (1)
  1. MICARDIS HCT [Suspect]
     Indication: HYPERTENSION
     Route: 048
     Dates: start: 20110220, end: 20110302

REACTIONS (5)
  - CONTUSION [None]
  - JOINT SWELLING [None]
  - OEDEMA PERIPHERAL [None]
  - DYSPNOEA [None]
  - SWOLLEN TONGUE [None]
